FAERS Safety Report 9034439 (Version 1)
Quarter: 2013Q1

REPORT INFORMATION
  Report Type: Spontaneous
  Country: BE (occurrence: None)
  Receive Date: 20130114
  Receipt Date: 20130114
  Transmission Date: 20140127
  Serious: Yes (Hospitalization)
  Sender: FDA-Public Use
  Company Number: NSR_00777_2013

PATIENT
  Age: 85 Year
  Sex: Female
  Weight: 61.5 kg

DRUGS (8)
  1. VENLAFAXINE [Suspect]
     Indication: DEPRESSION
     Dosage: (DF)
  2. MIRTAZAPINE [Suspect]
     Indication: DEPRESSION
     Dosage: (DF)
  3. MIRTAZAPINE [Suspect]
     Indication: RESTLESSNESS
     Dosage: (DF)
  4. BISOPROLOL [Concomitant]
  5. LEVOTHYROXIN? [Concomitant]
  6. REGULAX PICOSULPHATE [Concomitant]
  7. PANTOPRAZOLE [Concomitant]
  8. CALCIUM WITH VITAMIN D3 [Concomitant]

REACTIONS (18)
  - General physical health deterioration [None]
  - Loss of consciousness [None]
  - Mydriasis [None]
  - Metabolic encephalopathy [None]
  - Escherichia urinary tract infection [None]
  - Blood bicarbonate decreased [None]
  - Pyuria [None]
  - Hypertension [None]
  - Dehydration [None]
  - Blood sodium increased [None]
  - Inflammation [None]
  - Serotonin syndrome [None]
  - Drug interaction [None]
  - Blood lactic acid increased [None]
  - Blood urea increased [None]
  - Blood creatinine increased [None]
  - Glomerular filtration rate decreased [None]
  - Bacterial test positive [None]
